FAERS Safety Report 23092163 (Version 1)
Quarter: 2023Q4

REPORT INFORMATION
  Report Type: Spontaneous
  Country: US (occurrence: US)
  Receive Date: 20231021
  Receipt Date: 20231021
  Transmission Date: 20240110
  Serious: No
  Sender: FDA-Public Use
  Company Number: US-SA-SAC20231016000667

PATIENT
  Sex: Male
  Weight: 13.7 kg

DRUGS (4)
  1. DUPIXENT [Suspect]
     Active Substance: DUPILUMAB
     Indication: Dermatitis atopic
     Dosage: 200MG, EVERY 28 DAYS
     Route: 058
  2. DUPIXENT [Suspect]
     Active Substance: DUPILUMAB
     Dosage: 300MG, EVERY 28 DAYS
     Route: 058
  3. HYDROXYZINE HYDROCHLORIDE [Concomitant]
     Active Substance: HYDROXYZINE HYDROCHLORIDE
     Dosage: 10MG/5ML
  4. TRIAMCINOLONE ACETONIDE [Concomitant]
     Active Substance: TRIAMCINOLONE ACETONIDE

REACTIONS (4)
  - Dermatitis allergic [Unknown]
  - Condition aggravated [Unknown]
  - Therapeutic response decreased [Unknown]
  - Off label use [Unknown]
